FAERS Safety Report 12513217 (Version 1)
Quarter: 2016Q2

REPORT INFORMATION
  Report Type: Spontaneous
  Country: US (occurrence: None)
  Receive Date: 20160629
  Receipt Date: 20160629
  Transmission Date: 20160815
  Serious: Yes (Other)
  Sender: FDA-Public Use
  Company Number: None

PATIENT
  Age: 50 Year
  Sex: Female
  Weight: 79.38 kg

DRUGS (2)
  1. GABAPENTIN, 600 MG GLENMARK [Suspect]
     Active Substance: GABAPENTIN
     Indication: PAIN
     Dosage: 90 TABLET(S) THREE TIMES A DAY TAKEN BY MOUTH
     Route: 048
     Dates: start: 20160503, end: 20160625
  2. GABAPENTIN, 600 MG GLENMARK [Suspect]
     Active Substance: GABAPENTIN
     Indication: NERVE INJURY
     Dosage: 90 TABLET(S) THREE TIMES A DAY TAKEN BY MOUTH
     Route: 048
     Dates: start: 20160503, end: 20160625

REACTIONS (11)
  - Depression [None]
  - Memory impairment [None]
  - Insomnia [None]
  - Intentional product use issue [None]
  - Suicidal ideation [None]
  - Agitation [None]
  - Generalised tonic-clonic seizure [None]
  - Thinking abnormal [None]
  - Anger [None]
  - Delusion [None]
  - Speech disorder [None]

NARRATIVE: CASE EVENT DATE: 20160521
